FAERS Safety Report 15025531 (Version 1)
Quarter: 2018Q2

REPORT INFORMATION
  Report Type: Spontaneous
  Country: US (occurrence: US)
  Receive Date: 20180618
  Receipt Date: 20180618
  Transmission Date: 20180711
  Serious: Yes (Other)
  Sender: FDA-Public Use
  Company Number: US-ALLERGAN-1827941US

PATIENT
  Age: 60 Year
  Sex: Female

DRUGS (1)
  1. BOTOX [Suspect]
     Active Substance: ONABOTULINUMTOXINA
     Indication: OESOPHAGEAL ACHALASIA
     Dosage: UNK, SINGLE
     Route: 030
     Dates: start: 2012, end: 2012

REACTIONS (7)
  - Escherichia bacteraemia [Unknown]
  - Malaise [Unknown]
  - Altered state of consciousness [Unknown]
  - Feeling abnormal [Unknown]
  - Off label use [Unknown]
  - Seizure [Unknown]
  - Dysarthria [Unknown]

NARRATIVE: CASE EVENT DATE: 201612
